FAERS Safety Report 14416921 (Version 1)
Quarter: 2018Q1

REPORT INFORMATION
  Report Type: Spontaneous
  Country: US (occurrence: US)
  Receive Date: 20180122
  Receipt Date: 20180122
  Transmission Date: 20180509
  Serious: No
  Sender: FDA-Public Use
  Company Number: US-PFIZER INC-2018021678

PATIENT
  Sex: Female

DRUGS (2)
  1. FULVESTRANT. [Interacting]
     Active Substance: FULVESTRANT
     Indication: ENDOCRINE DISORDER
     Dosage: UNK
  2. IBRANCE [Suspect]
     Active Substance: PALBOCICLIB
     Dosage: UNK

REACTIONS (2)
  - Tumour marker increased [Unknown]
  - Drug interaction [Unknown]
